FAERS Safety Report 18041211 (Version 1)
Quarter: 2020Q3

REPORT INFORMATION
  Report Type: Spontaneous
  Country: US (occurrence: US)
  Receive Date: 20200719
  Receipt Date: 20200719
  Transmission Date: 20201103
  Serious: Yes (Hospitalization, Other)
  Sender: FDA-Public Use
  Company Number: US-ACCORD-191281

PATIENT
  Sex: Female

DRUGS (11)
  1. FENTANYL. [Suspect]
     Active Substance: FENTANYL
     Indication: ANALGESIC THERAPY
  2. METHADONE [Suspect]
     Active Substance: METHADONE HYDROCHLORIDE
     Indication: ANALGESIC THERAPY
  3. CISATRACURIUM/CISATRACURIUM BESILATE [Suspect]
     Active Substance: CISATRACURIUM BESYLATE
     Indication: ANALGESIC THERAPY
     Dosage: MAXIMUM DOSE
  4. DEXMEDETOMIDINE. [Suspect]
     Active Substance: DEXMEDETOMIDINE
     Indication: SEDATIVE THERAPY
     Dosage: MAXIMUM DOSE
  5. HYDROMORPHONE/HYDROMORPHONE HYDROCHLORIDE [Suspect]
     Active Substance: HYDROMORPHONE
     Indication: ANALGESIC THERAPY
     Dosage: MAXIMUM DOSE
  6. CLONIDINE. [Concomitant]
     Active Substance: CLONIDINE
  7. NALOXONE [Concomitant]
     Active Substance: NALOXONE
     Indication: PRURITUS
     Dosage: LOW?DOSE INFUSION
  8. KETAMINE [Suspect]
     Active Substance: KETAMINE
     Indication: SEDATIVE THERAPY
  9. MIDAZOLAM. [Suspect]
     Active Substance: MIDAZOLAM
     Indication: SEDATIVE THERAPY
     Dosage: MAXIMUM DOSE
  10. PENTOBARBITAL. [Suspect]
     Active Substance: PENTOBARBITAL
     Indication: SEDATIVE THERAPY
  11. LORAZEPAM. [Suspect]
     Active Substance: LORAZEPAM
     Indication: SEDATIVE THERAPY

REACTIONS (3)
  - Pruritus [Unknown]
  - Delirium [Recovered/Resolved]
  - Tachyphylaxis [Unknown]
